FAERS Safety Report 19925773 (Version 2)
Quarter: 2021Q4

REPORT INFORMATION
  Report Type: Other
  Country: US (occurrence: None)
  Receive Date: 20211007
  Receipt Date: 20211114
  Transmission Date: 20220303
  Serious: No
  Sender: FDA-Public Use
  Company Number: US-ROCHE-2924883

PATIENT
  Age: 69 Year
  Sex: Female
  Weight: 54.480 kg

DRUGS (7)
  1. OCREVUS [Suspect]
     Active Substance: OCRELIZUMAB
     Indication: Multiple sclerosis
     Route: 042
  2. GABAPENTIN [Concomitant]
     Active Substance: GABAPENTIN
     Route: 048
  3. DULOXETINE [Concomitant]
     Active Substance: DULOXETINE
     Route: 048
  4. ADDERALL XR [Concomitant]
     Active Substance: AMPHETAMINE ASPARTATE\AMPHETAMINE SULFATE\DEXTROAMPHETAMINE SACCHARATE\DEXTROAMPHETAMINE SULFATE
     Route: 048
  5. MYRBETRIQ [Concomitant]
     Active Substance: MIRABEGRON
     Route: 048
  6. LISINOPRIL [Concomitant]
     Active Substance: LISINOPRIL
     Indication: Hypertension
     Route: 048
  7. COVID-19 VACCINE [Concomitant]

REACTIONS (3)
  - COVID-19 [Recovered/Resolved]
  - Attention deficit hyperactivity disorder [Not Recovered/Not Resolved]
  - Hypertension [Not Recovered/Not Resolved]

NARRATIVE: CASE EVENT DATE: 20210916
